FAERS Safety Report 24126536 (Version 1)
Quarter: 2024Q3

REPORT INFORMATION
  Report Type: Spontaneous
  Country: US (occurrence: None)
  Receive Date: 20240722
  Receipt Date: 20240722
  Transmission Date: 20241017
  Serious: No
  Sender: Public
  Company Number: None

PATIENT
  Age: 56 Year
  Sex: Female

DRUGS (2)
  1. SIMPONI [Suspect]
     Active Substance: GOLIMUMAB
     Indication: Ankylosing spondylitis
     Dosage: FREQUENCY : MONTHLY;?
     Route: 058
     Dates: start: 202406
  2. RINVOQ [Concomitant]
     Active Substance: UPADACITINIB

REACTIONS (5)
  - Heart rate increased [None]
  - Blood glucose increased [None]
  - Paranasal sinus discomfort [None]
  - Ear discomfort [None]
  - Drug ineffective [None]

NARRATIVE: CASE EVENT DATE: 20240701
